FAERS Safety Report 9781013 (Version 1)
Quarter: 2013Q4

REPORT INFORMATION
  Report Type: Spontaneous
  Country: US (occurrence: None)
  Receive Date: 20131223
  Receipt Date: 20131223
  Transmission Date: 20140711
  Serious: Yes (Life-Threatening, Hospitalization, Disabling)
  Sender: FDA-Public Use
  Company Number: None

PATIENT
  Age: 74 Year
  Sex: Female
  Weight: 99.79 kg

DRUGS (1)
  1. QUININE [Suspect]
     Dates: start: 20131130, end: 20131201

REACTIONS (16)
  - Hypersensitivity [None]
  - Nausea [None]
  - Vomiting [None]
  - Diarrhoea [None]
  - Blood pressure increased [None]
  - Pollakiuria [None]
  - Tinnitus [None]
  - Epistaxis [None]
  - Palpitations [None]
  - Paraesthesia [None]
  - Myalgia [None]
  - Toxicity to various agents [None]
  - Dizziness [None]
  - Cardiovascular disorder [None]
  - Liver disorder [None]
  - Renal disorder [None]
